FAERS Safety Report 19825484 (Version 1)
Quarter: 2021Q3

REPORT INFORMATION
  Report Type: Spontaneous
  Country: US (occurrence: US)
  Receive Date: 20210914
  Receipt Date: 20210914
  Transmission Date: 20211014
  Serious: No
  Sender: FDA-Public Use
  Company Number: US-BIOGEN-2020BI00826225

PATIENT
  Sex: Male

DRUGS (5)
  1. NAPROXEN. [Concomitant]
     Active Substance: NAPROXEN
     Route: 065
  2. TECFIDERA [Suspect]
     Active Substance: DIMETHYL FUMARATE
     Indication: MULTIPLE SCLEROSIS
     Dosage: TAKE 1 CAPSULE BY MOUTH TWICE A DAY
     Route: 048
     Dates: start: 20190601
  3. TECFIDERA [Suspect]
     Active Substance: DIMETHYL FUMARATE
     Route: 065
     Dates: start: 20200102, end: 20210531
  4. VITAMIN D [Concomitant]
     Active Substance: VITAMIN D NOS
     Route: 065
  5. VICKS NYQUIL [Concomitant]
     Active Substance: ACETAMINOPHEN\DEXTROMETHORPHAN HYDROBROMIDE\DOXYLAMINE SUCCINATE
     Route: 065

REACTIONS (7)
  - Product dose omission issue [Unknown]
  - Nasal disorder [Unknown]
  - Drug ineffective [Unknown]
  - Epigastric discomfort [Recovered/Resolved]
  - Dyspepsia [Recovered/Resolved with Sequelae]
  - Hypersomnia [Not Recovered/Not Resolved]
  - Fatigue [Not Recovered/Not Resolved]
